FAERS Safety Report 7588984-4 (Version None)
Quarter: 2011Q3

REPORT INFORMATION
  Report Type: 
  Country: None (occurrence: None)
  Receive Date: 20110705
  Receipt Date: 20110623
  Transmission Date: 20111222
  Serious: Yes (Other)
  Sender: FDA-Public Use
  Company Number: US-AMGEN-USASP2011024521

PATIENT
  Sex: Female

DRUGS (3)
  1. ENBREL [Suspect]
     Indication: PSORIASIS
  2. REMICADE [Concomitant]
     Dosage: UNK
     Dates: start: 20100301
  3. ENBREL [Suspect]
     Indication: RHEUMATOID ARTHRITIS
     Dosage: 50 MG, QWK
     Dates: start: 20090801

REACTIONS (6)
  - AORTIC ANEURYSM [None]
  - PSORIASIS [None]
  - PHARYNGITIS STREPTOCOCCAL [None]
  - RHEUMATOID ARTHRITIS [None]
  - PNEUMONIA [None]
  - CHRONIC OBSTRUCTIVE PULMONARY DISEASE [None]
